FAERS Safety Report 24386945 (Version 2)
Quarter: 2024Q4

REPORT INFORMATION
  Report Type: Report from Study
  Country: US (occurrence: US)
  Receive Date: 20241002
  Receipt Date: 20241009
  Transmission Date: 20250114
  Serious: Yes (Hospitalization)
  Sender: ABBVIE
  Company Number: US-ABBVIE-5940188

PATIENT
  Sex: Female
  Weight: 98.429 kg

DRUGS (2)
  1. CREON [Suspect]
     Active Substance: PANCRELIPASE AMYLASE\PANCRELIPASE LIPASE\PANCRELIPASE PROTEASE
     Indication: Pancreatic carcinoma
     Dosage: FORM STRENGTH: 36000 UNIT?FREQUENCY TEXT: 2 CAPS EACH MEAL AND 1 CAP EACH SNACK
     Route: 048
     Dates: start: 202409
  2. CREON [Suspect]
     Active Substance: PANCRELIPASE AMYLASE\PANCRELIPASE LIPASE\PANCRELIPASE PROTEASE
     Indication: Pancreatic carcinoma
     Dosage: LAST ADMIN DATE: SEP 2024?FORM STRENGTH: 36000 UNIT?FREQUENCY TEXT: 2 CAPS EACH MEAL AND 1 CAP EA...
     Route: 048
     Dates: start: 20240901

REACTIONS (9)
  - Blood potassium decreased [Recovering/Resolving]
  - Ulcer [Recovered/Resolved]
  - Diarrhoea [Recovered/Resolved]
  - Pyrexia [Unknown]
  - Mouth ulceration [Recovered/Resolved]
  - Unevaluable event [Unknown]
  - Blood pressure measurement [Unknown]
  - Blood cholesterol [Unknown]
  - Pharyngeal ulceration [Recovered/Resolved]

NARRATIVE: CASE EVENT DATE: 20240101
